FAERS Safety Report 15396452 (Version 1)
Quarter: 2018Q3

REPORT INFORMATION
  Report Type: Spontaneous
  Country: US (occurrence: US)
  Receive Date: 20180918
  Receipt Date: 20180918
  Transmission Date: 20181010
  Serious: No
  Sender: FDA-Public Use
  Company Number: US-BAYER-2018-169691

PATIENT
  Age: 43 Year
  Sex: Male
  Weight: 76 kg

DRUGS (1)
  1. LOTRIMIN ULTRA [Suspect]
     Active Substance: BUTENAFINE HYDROCHLORIDE
     Indication: THERAPEUTIC SKIN CARE TOPICAL
     Dosage: 1 DF, AT NIGHT
     Route: 061
     Dates: start: 201809

REACTIONS (3)
  - Product physical consistency issue [None]
  - Poor quality drug administered [None]
  - Product use in unapproved indication [Unknown]

NARRATIVE: CASE EVENT DATE: 201809
